FAERS Safety Report 21461829 (Version 1)
Quarter: 2022Q4

REPORT INFORMATION
  Report Type: Report from Study
  Country: US (occurrence: US)
  Receive Date: 20221015
  Receipt Date: 20221015
  Transmission Date: 20230113
  Serious: No
  Sender: FDA-Public Use
  Company Number: US-ABBVIE-4142968

PATIENT
  Sex: Male

DRUGS (1)
  1. IMBRUVICA [Suspect]
     Active Substance: IBRUTINIB
     Indication: Chronic lymphocytic leukaemia
     Dosage: EXPIRATIO DATE : OCT 2024
     Route: 048
     Dates: start: 20220516

REACTIONS (4)
  - Increased tendency to bruise [Unknown]
  - Skin ulcer [Unknown]
  - Blood cholesterol increased [Unknown]
  - Scab [Unknown]
